FAERS Safety Report 20396638 (Version 2)
Quarter: 2022Q1

REPORT INFORMATION
  Report Type: Spontaneous
  Country: US (occurrence: US)
  Receive Date: 20220130
  Receipt Date: 20220201
  Transmission Date: 20220423
  Serious: Yes (Other)
  Sender: FDA-Public Use
  Company Number: US-ABBVIE-21K-163-3835269-00

PATIENT
  Sex: Female
  Weight: 64.86 kg

DRUGS (2)
  1. HUMIRA [Suspect]
     Active Substance: ADALIMUMAB
     Indication: Vasculitis
     Route: 058
  2. INSPRA [Suspect]
     Active Substance: EPLERENONE
     Indication: Adrenal disorder
     Dosage: 25MG TWO TABLETS IN THE MORNING AND 25MG TWO TABLETS AT NIGHT BY MOUTH
     Route: 048

REACTIONS (3)
  - Lip neoplasm malignant stage unspecified [Unknown]
  - Adrenal insufficiency [Unknown]
  - Therapeutic product effect decreased [Unknown]
